FAERS Safety Report 11231168 (Version 1)
Quarter: 2015Q2

REPORT INFORMATION
  Report Type: Spontaneous
  Country: US (occurrence: None)
  Receive Date: 20150629
  Receipt Date: 20150629
  Transmission Date: 20150821
  Serious: Yes (Other)
  Sender: FDA-Public Use
  Company Number: None

PATIENT
  Age: 68 Year
  Sex: Female
  Weight: 68.04 kg

DRUGS (2)
  1. CHLORHEX GLU 0.12% SOL 0.12 XTRIUM LABORTORIES [Suspect]
     Active Substance: CHLORHEXIDINE GLUCONATE
     Indication: DENTAL OPERATION
     Dosage: MOUTH WASH
     Route: 048
     Dates: start: 20150617, end: 20150618
  2. ZYRTEC D ALLERGY AND CONGESTION [Concomitant]
     Active Substance: CETIRIZINE HYDROCHLORIDE\PSEUDOEPHEDRINE HYDROCHLORIDE

REACTIONS (2)
  - Mouth swelling [None]
  - Product label issue [None]

NARRATIVE: CASE EVENT DATE: 20150618
